FAERS Safety Report 7392659-4 (Version None)
Quarter: 2011Q1

REPORT INFORMATION
  Report Type: 
  Country: None (occurrence: None)
  Receive Date: 20110330
  Receipt Date: 20110330
  Transmission Date: 20110831
  Serious: Yes (Hospitalization, Other)
  Sender: FDA-Public Use
  Company Number: None

PATIENT
  Age: 49 Year
  Sex: Male
  Weight: 102.0593 kg

DRUGS (1)
  1. LAMOTRIGINE [Suspect]
     Indication: CONVULSION
     Dosage: 100MG AM/ 150MG PM AM/PM PO
     Route: 048
     Dates: start: 20010701, end: 20110328

REACTIONS (5)
  - NAUSEA [None]
  - CHILLS [None]
  - CONVULSION [None]
  - VOMITING [None]
  - PYREXIA [None]
